FAERS Safety Report 10750437 (Version 3)
Quarter: 2016Q1

REPORT INFORMATION
  Report Type: Report from Study
  Country: RU (occurrence: RU)
  Receive Date: 20150130
  Receipt Date: 20160219
  Transmission Date: 20160525
  Serious: Yes (Death)
  Sender: FDA-Public Use
  Company Number: RU-ROCHE-1477317

PATIENT

DRUGS (2)
  1. RITUXIMAB [Suspect]
     Active Substance: RITUXIMAB
     Indication: SJOGREN^S SYNDROME
     Route: 041
  2. CYCLOPHOSPHAMIDE. [Suspect]
     Active Substance: CYCLOPHOSPHAMIDE
     Indication: SJOGREN^S SYNDROME
     Dosage: ON DAY AFTER RITUXIMAB INFUSION
     Route: 041

REACTIONS (5)
  - Infusion related reaction [Unknown]
  - Purpura [Unknown]
  - Treatment failure [Fatal]
  - Product use issue [Unknown]
  - Cryoglobulinaemia [Unknown]
